FAERS Safety Report 5856175-0 (Version None)
Quarter: 2008Q3

REPORT INFORMATION
  Report Type: 
  Country: None (occurrence: None)
  Receive Date: 20080825
  Receipt Date: 20080821
  Transmission Date: 20090109
  Serious: Yes (Hospitalization, Other)
  Sender: FDA-Public Use
  Company Number: A0718379A

PATIENT
  Age: 56 Year
  Sex: Male
  Weight: 72.7 kg

DRUGS (6)
  1. AVANDIA [Suspect]
     Dosage: 4MG PER DAY
     Dates: start: 20020101, end: 20070601
  2. AVANDAMET [Suspect]
     Dates: start: 20020101, end: 20070601
  3. AVANDARYL [Suspect]
     Dates: start: 20020101, end: 20070601
  4. GLUCOPHAGE [Concomitant]
     Dates: start: 20030101, end: 20060101
  5. METFORMIN [Concomitant]
     Dates: start: 20030101, end: 20060101
  6. AMARYL [Concomitant]
     Dates: start: 20040101

REACTIONS (5)
  - ARTERIAL OCCLUSIVE DISEASE [None]
  - CARDIAC DISORDER [None]
  - CHEST PAIN [None]
  - MYOCARDIAL INFARCTION [None]
  - STENT PLACEMENT [None]
